FAERS Safety Report 25269352 (Version 1)
Quarter: 2025Q2

REPORT INFORMATION
  Report Type: Spontaneous
  Country: US (occurrence: US)
  Receive Date: 20250505
  Receipt Date: 20250505
  Transmission Date: 20250717
  Serious: No
  Sender: BAYER HEALTHCARE LLC
  Company Number: US-BAYER-2025A058041

PATIENT

DRUGS (2)
  1. MIRALAX [Suspect]
     Active Substance: POLYETHYLENE GLYCOL 3350
     Indication: Preoperative care
     Route: 048
     Dates: start: 202501
  2. Dulcolax [Concomitant]

REACTIONS (4)
  - Vomiting [None]
  - Migraine [None]
  - Adverse event [None]
  - Product prescribing issue [None]

NARRATIVE: CASE EVENT DATE: 20250101
